FAERS Safety Report 11573741 (Version 2)
Quarter: 2015Q4

REPORT INFORMATION
  Report Type: Report from Study
  Country: US (occurrence: US)
  Receive Date: 20150929
  Receipt Date: 20151026
  Transmission Date: 20160304
  Serious: Yes (Other)
  Sender: FDA-Public Use
  Company Number: US-EXELIXIS-CABO-15005482

PATIENT
  Age: 63 Year
  Sex: Female

DRUGS (11)
  1. IMITREX [Concomitant]
     Active Substance: SUMATRIPTAN\SUMATRIPTAN SUCCINATE
  2. AROMASIN [Concomitant]
     Active Substance: EXEMESTANE
  3. HYDROCODONE [Concomitant]
     Active Substance: HYDROCODONE
  4. OMEPRAZOLE. [Concomitant]
     Active Substance: OMEPRAZOLE
  5. LETROZOLE. [Concomitant]
     Active Substance: LETROZOLE
  6. TYLENOL [Concomitant]
     Active Substance: ACETAMINOPHEN
  7. COMETRIQ [Suspect]
     Active Substance: CABOZANTINIB S-MALATE
     Dosage: 100 MG, QD
     Route: 048
     Dates: start: 20150622, end: 20150702
  8. CALCIUM [Concomitant]
     Active Substance: CALCIUM
  9. VITAMIN D [Concomitant]
     Active Substance: CHOLECALCIFEROL
  10. COMETRIQ [Suspect]
     Active Substance: CABOZANTINIB S-MALATE
     Indication: BREAST CANCER
     Dosage: 140 MG, QD
     Route: 048
     Dates: start: 20150521, end: 20150611
  11. COMETRIQ [Suspect]
     Active Substance: CABOZANTINIB S-MALATE
     Dosage: 100 MG, QD
     Route: 048
     Dates: start: 20150709, end: 20150813

REACTIONS (15)
  - Dyspnoea [Unknown]
  - Ejection fraction decreased [Recovering/Resolving]
  - Asthenia [Not Recovered/Not Resolved]
  - Nausea [Unknown]
  - Oropharyngeal pain [Unknown]
  - Dizziness [Unknown]
  - Constipation [Unknown]
  - Off label use [Unknown]
  - Middle ear effusion [Unknown]
  - Presyncope [Unknown]
  - Insomnia [Unknown]
  - Throat irritation [Unknown]
  - Oral pain [Unknown]
  - Ageusia [Unknown]
  - Epistaxis [Unknown]

NARRATIVE: CASE EVENT DATE: 20150610
